FAERS Safety Report 15992778 (Version 1)
Quarter: 2019Q1

REPORT INFORMATION
  Report Type: Spontaneous
  Country: IE (occurrence: IE)
  Receive Date: 20190221
  Receipt Date: 20190221
  Transmission Date: 20190418
  Serious: No
  Sender: FDA-Public Use
  Company Number: IE-JAZZ-2018-IE-013984

PATIENT
  Age: 47 Year
  Sex: Male

DRUGS (1)
  1. VYXEOS [Suspect]
     Active Substance: CYTARABINE\DAUNORUBICIN
     Indication: ACUTE MYELOID LEUKAEMIA
     Dosage: DAYS 1, 3 AND 5

REACTIONS (2)
  - Rash [Unknown]
  - Incorrect route of product administration [Unknown]
